FAERS Safety Report 7988679-9 (Version None)
Quarter: 2011Q4

REPORT INFORMATION
  Report Type: 
  Country: None (occurrence: None)
  Receive Date: 20111218
  Receipt Date: 20111205
  Transmission Date: 20120403
  Serious: Yes (Hospitalization, Disabling, Congenital Anomaly)
  Sender: FDA-Public Use
  Company Number: DE-ELI_LILLY_AND_COMPANY-DE201112001304

PATIENT
  Sex: Female

DRUGS (3)
  1. FOLSAURE [Concomitant]
     Indication: PROPHYLAXIS
     Dosage: 0.5 MG, QD
     Route: 064
  2. ZYPREXA [Suspect]
     Indication: SCHIZOAFFECTIVE DISORDER
     Dosage: 10 MG, QD
     Route: 064
  3. ZYPREXA [Suspect]
     Dosage: 5 MG, QD
     Route: 064

REACTIONS (3)
  - HYPERTONIA [None]
  - CLEFT PALATE [None]
  - FOETAL EXPOSURE DURING PREGNANCY [None]
